FAERS Safety Report 20532992 (Version 80)
Quarter: 2025Q4

REPORT INFORMATION
  Report Type: Report from Study
  Country: CA (occurrence: CA)
  Receive Date: 20220301
  Receipt Date: 20251229
  Transmission Date: 20260117
  Serious: Yes (Hospitalization, Other)
  Sender: TAKEDA
  Company Number: CA-TAKEDA-CA202031603

PATIENT
  Age: 7 Year
  Sex: Male
  Weight: 30.839 kg

DRUGS (58)
  1. IDURSULFASE [Suspect]
     Active Substance: IDURSULFASE
     Indication: Mucopolysaccharidosis II
     Dosage: 18 MILLIGRAM, 1/WEEK
     Dates: start: 200301
  2. IDURSULFASE [Suspect]
     Active Substance: IDURSULFASE
     Dosage: UNK
  3. IDURSULFASE [Suspect]
     Active Substance: IDURSULFASE
     Dosage: 16.3 MILLIGRAM, 1/WEEK
  4. IDURSULFASE [Suspect]
     Active Substance: IDURSULFASE
     Dosage: 15.8 MILLIGRAM, 1/WEEK
  5. IDURSULFASE [Suspect]
     Active Substance: IDURSULFASE
     Dosage: 3 DOSAGE FORM, 1/WEEK
  6. IDURSULFASE [Suspect]
     Active Substance: IDURSULFASE
     Dosage: 15.5 MILLIGRAM, 1/WEEK
  7. IDURSULFASE [Suspect]
     Active Substance: IDURSULFASE
     Dosage: 3 DOSAGE FORM, 1/WEEK
  8. IDURSULFASE [Suspect]
     Active Substance: IDURSULFASE
     Dosage: 3 DOSAGE FORM, 1/WEEK
  9. IDURSULFASE [Suspect]
     Active Substance: IDURSULFASE
     Dosage: 3 DOSAGE FORM, 1/WEEK
  10. IDURSULFASE [Suspect]
     Active Substance: IDURSULFASE
     Dosage: 3 DOSAGE FORM, 1/WEEK
  11. IDURSULFASE [Suspect]
     Active Substance: IDURSULFASE
     Dosage: 16.15 MILLIGRAM, 1/WEEK
  12. IDURSULFASE [Suspect]
     Active Substance: IDURSULFASE
     Dosage: 3 DOSAGE FORM, 1/WEEK
  13. IDURSULFASE [Suspect]
     Active Substance: IDURSULFASE
     Dosage: 3 DOSAGE FORM, 1/WEEK
  14. IDURSULFASE [Suspect]
     Active Substance: IDURSULFASE
     Dosage: 16.15 MILLIGRAM, 1/WEEK
  15. IDURSULFASE [Suspect]
     Active Substance: IDURSULFASE
     Dosage: 16.5 MILLIGRAM, 1/WEEK
  16. IDURSULFASE [Suspect]
     Active Substance: IDURSULFASE
     Dosage: 16.5 MILLIGRAM, 1/WEEK
  17. IDURSULFASE [Suspect]
     Active Substance: IDURSULFASE
     Dosage: 16.5 MILLIGRAM, 1/WEEK
  18. IDURSULFASE [Suspect]
     Active Substance: IDURSULFASE
     Dosage: 3 DOSAGE FORM, 1/WEEK
  19. IDURSULFASE [Suspect]
     Active Substance: IDURSULFASE
     Dosage: 16.3 MILLIGRAM, 1/WEEK
  20. IDURSULFASE [Suspect]
     Active Substance: IDURSULFASE
     Dosage: 16.3 MILLIGRAM, 1/WEEK
  21. IDURSULFASE [Suspect]
     Active Substance: IDURSULFASE
     Dosage: UNK UNK, 1/WEEK
  22. IDURSULFASE [Suspect]
     Active Substance: IDURSULFASE
     Dosage: 16.6 MILLIGRAM, 1/WEEK
  23. IDURSULFASE [Suspect]
     Active Substance: IDURSULFASE
     Dosage: 16.6 MILLIGRAM, 1/WEEK
  24. IDURSULFASE [Suspect]
     Active Substance: IDURSULFASE
     Dosage: 16.6 MILLIGRAM, 1/WEEK
  25. IDURSULFASE [Suspect]
     Active Substance: IDURSULFASE
     Dosage: 16.6 MILLIGRAM, 1/WEEK
  26. IDURSULFASE [Suspect]
     Active Substance: IDURSULFASE
     Dosage: 18 MILLIGRAM
  27. IDURSULFASE [Suspect]
     Active Substance: IDURSULFASE
     Dosage: 18 MILLIGRAM, 1/WEEK
  28. IDURSULFASE [Suspect]
     Active Substance: IDURSULFASE
     Dosage: UNK UNK, 1/WEEK
  29. IDURSULFASE [Suspect]
     Active Substance: IDURSULFASE
     Dosage: UNK, UNK, 1/WEEK
  30. IDURSULFASE [Suspect]
     Active Substance: IDURSULFASE
     Dosage: 18 MILLIGRAM, 1/WEEK
  31. IDURSULFASE [Suspect]
     Active Substance: IDURSULFASE
     Dosage: 15.8 MILLIGRAM, 1/WEEK
  32. IDURSULFASE [Suspect]
     Active Substance: IDURSULFASE
     Dosage: 15.8 MILLIGRAM, 1/WEEK
  33. IDURSULFASE [Suspect]
     Active Substance: IDURSULFASE
     Dosage: UNK UNK, 1/WEEK
  34. IDURSULFASE [Suspect]
     Active Substance: IDURSULFASE
     Dosage: UNK UNK, 1/WEEK
  35. IDURSULFASE [Suspect]
     Active Substance: IDURSULFASE
     Dosage: 15.8 MILLIGRAM, 1/WEEK
  36. IDURSULFASE [Suspect]
     Active Substance: IDURSULFASE
     Dosage: 15.8 MILLIGRAM, 1/WEEK
  37. IDURSULFASE [Suspect]
     Active Substance: IDURSULFASE
     Dosage: UNK UNK, 1/WEEK
  38. IDURSULFASE [Suspect]
     Active Substance: IDURSULFASE
     Dosage: 15.8 MILLIGRAM, 1/WEEK
  39. IDURSULFASE [Suspect]
     Active Substance: IDURSULFASE
     Dosage: 15.8 MILLIGRAM, 1/WEEK
  40. IDURSULFASE [Suspect]
     Active Substance: IDURSULFASE
     Dosage: 15.8 MILLIGRAM, 1/WEEK
  41. IDURSULFASE [Suspect]
     Active Substance: IDURSULFASE
     Dosage: UNK UNK, 1/WEEK
  42. IDURSULFASE [Suspect]
     Active Substance: IDURSULFASE
     Dosage: 18 MILLIGRAM, 1/WEEK
  43. IDURSULFASE [Suspect]
     Active Substance: IDURSULFASE
     Dosage: 15.8 MILLIGRAM, 1/WEEK
  44. IDURSULFASE [Suspect]
     Active Substance: IDURSULFASE
     Dosage: 15 MILLIGRAM, 1/WEEK
  45. IDURSULFASE [Suspect]
     Active Substance: IDURSULFASE
     Dosage: 15 MILLIGRAM, 1/WEEK
  46. IDURSULFASE [Suspect]
     Active Substance: IDURSULFASE
     Dosage: 15 GRAM, 1/WEEK
  47. IDURSULFASE [Suspect]
     Active Substance: IDURSULFASE
     Dosage: 15 MILLIGRAM, 1/WEEK
  48. IDURSULFASE [Suspect]
     Active Substance: IDURSULFASE
     Dosage: UNK UNK, 1/WEEK
  49. IDURSULFASE [Suspect]
     Active Substance: IDURSULFASE
     Dosage: 15 MILLIGRAM, 1/WEEK
  50. SODIUM CHLORIDE [Suspect]
     Active Substance: SODIUM CHLORIDE
     Indication: Product used for unknown indication
     Dosage: 100 MILLILITER
  51. DIPHENHYDRAMINE [Concomitant]
     Active Substance: DIPHENHYDRAMINE
     Dosage: 25 MILLIGRAM
  52. BENADRYL [Concomitant]
     Active Substance: DIPHENHYDRAMINE HYDROCHLORIDE
     Dosage: UNK
  53. TYLENOL [Concomitant]
     Active Substance: ACETAMINOPHEN
     Dosage: UNK
  54. INTUNIV [Concomitant]
     Active Substance: GUANFACINE HYDROCHLORIDE
     Dosage: UNK
  55. GUANFACINE [Concomitant]
     Active Substance: GUANFACINE
     Dosage: UNK UNK, QOD
     Dates: start: 20240525
  56. TRANEXAMIC ACID [Concomitant]
     Active Substance: TRANEXAMIC ACID
     Dosage: 750 MILLIGRAM
  57. IDURSULFASE [Concomitant]
     Active Substance: IDURSULFASE
     Dosage: UNK
  58. AMOXICILLIN [Concomitant]
     Active Substance: AMOXICILLIN
     Dosage: UNK

REACTIONS (65)
  - Umbilical hernia [Recovering/Resolving]
  - Deafness [Not Recovered/Not Resolved]
  - Renal failure [Not Recovered/Not Resolved]
  - Seizure [Recovering/Resolving]
  - Infusion site haemorrhage [Recovered/Resolved]
  - Poor venous access [Recovered/Resolved]
  - Infusion site bruising [Recovering/Resolving]
  - Moaning [Recovered/Resolved]
  - Contusion [Not Recovered/Not Resolved]
  - Patient uncooperative [Unknown]
  - Respiratory rate decreased [Unknown]
  - Catheter site discolouration [Unknown]
  - Behaviour disorder [Unknown]
  - Skin discolouration [Not Recovered/Not Resolved]
  - Insomnia [Not Recovered/Not Resolved]
  - Drug resistance [Unknown]
  - Irritability [Recovered/Resolved]
  - Gait disturbance [Recovered/Resolved]
  - Poor quality sleep [Unknown]
  - Pain in extremity [Recovered/Resolved]
  - COVID-19 [Not Recovered/Not Resolved]
  - Ear pain [Not Recovered/Not Resolved]
  - Otorrhoea [Not Recovered/Not Resolved]
  - Mobility decreased [Not Recovered/Not Resolved]
  - Heart rate increased [Unknown]
  - Movement disorder [Unknown]
  - Device issue [Unknown]
  - Protein urine present [Unknown]
  - Urine protein/creatinine ratio abnormal [Unknown]
  - Device leakage [Recovered/Resolved]
  - Drug delivery system issue [Unknown]
  - Incorrect dose administered [Unknown]
  - Recalled product administered [Unknown]
  - Stress [Unknown]
  - Pain [Unknown]
  - Nasopharyngitis [Recovering/Resolving]
  - Asthenia [Recovering/Resolving]
  - Ear infection [Recovering/Resolving]
  - Fatigue [Not Recovered/Not Resolved]
  - Medical device site infection [Recovered/Resolved]
  - Inappropriate schedule of product administration [Unknown]
  - Sleep terror [Unknown]
  - Tendon disorder [Not Recovered/Not Resolved]
  - Nasal congestion [Recovering/Resolving]
  - Catheter site bruise [Recovering/Resolving]
  - Catheter site haemorrhage [Recovered/Resolved]
  - Grimacing [Unknown]
  - Agitation [Unknown]
  - Restlessness [Recovered/Resolved]
  - Application site rash [Unknown]
  - Application site pruritus [Unknown]
  - Dermatitis contact [Unknown]
  - Aggression [Unknown]
  - Infusion site erythema [Unknown]
  - Rhinorrhoea [Not Recovered/Not Resolved]
  - Urine protein/creatinine ratio increased [Not Recovered/Not Resolved]
  - Blood creatine increased [Not Recovered/Not Resolved]
  - Infusion site infection [Recovered/Resolved]
  - Cough [Recovering/Resolving]
  - Diarrhoea [Recovering/Resolving]
  - Pyrexia [Unknown]
  - Malaise [Unknown]
  - Rhonchi [Recovering/Resolving]
  - Catheter site infection [Recovered/Resolved]
  - Upper respiratory tract infection [Recovered/Resolved]

NARRATIVE: CASE EVENT DATE: 20200923
